FAERS Safety Report 16559518 (Version 1)
Quarter: 2019Q3

REPORT INFORMATION
  Report Type: Spontaneous
  Country: TR (occurrence: TR)
  Receive Date: 20190711
  Receipt Date: 20190711
  Transmission Date: 20191004
  Serious: Yes (Death, Life-Threatening, Hospitalization, Other)
  Sender: FDA-Public Use
  Company Number: TR-ACCORD-137696

PATIENT
  Age: 69 Year
  Sex: Female

DRUGS (1)
  1. ATORVASTATIN/ATORVASTATIN CALCIUM [Suspect]
     Active Substance: ATORVASTATIN CALCIUM
     Indication: PRODUCT USED FOR UNKNOWN INDICATION
     Dosage: HIGH-DOSE

REACTIONS (7)
  - Escherichia infection [Fatal]
  - Pulmonary oedema [Fatal]
  - Urosepsis [Fatal]
  - Rhabdomyolysis [Fatal]
  - Acute kidney injury [Fatal]
  - Cardiac dysfunction [Fatal]
  - Multiple organ dysfunction syndrome [Fatal]
